FAERS Safety Report 21613838 (Version 2)
Quarter: 2022Q4

REPORT INFORMATION
  Report Type: Spontaneous
  Country: US (occurrence: US)
  Receive Date: 20221118
  Receipt Date: 20221201
  Transmission Date: 20230113
  Serious: Yes (Other)
  Sender: FDA-Public Use
  Company Number: US-009507513-2211USA003639

PATIENT
  Age: 44 Year
  Sex: Female
  Weight: 111 kg

DRUGS (13)
  1. BRIDION [Suspect]
     Active Substance: SUGAMMADEX
     Indication: Neuromuscular blockade reversal
     Dosage: 1 DOSAGE FORM (PRODUCT QUANTITY REPORTED AS 1), ONCE
     Route: 042
     Dates: start: 2018
  2. BRIDION [Suspect]
     Active Substance: SUGAMMADEX
     Dosage: 200 MG, ONCE
     Route: 042
     Dates: start: 20220408
  3. BRIDION [Suspect]
     Active Substance: SUGAMMADEX
     Dosage: 200 MG, ONCE
     Route: 042
     Dates: start: 20221025
  4. XANAX [Concomitant]
     Active Substance: ALPRAZOLAM
     Dosage: AS NEEDED
  5. CARVEDILOL [Concomitant]
     Active Substance: CARVEDILOL
  6. ESTRADIOL [Concomitant]
     Active Substance: ESTRADIOL
  7. PEPCID [Concomitant]
     Active Substance: FAMOTIDINE
  8. SYNTHROID [Concomitant]
     Active Substance: LEVOTHYROXINE SODIUM
  9. METFORMIN [Concomitant]
     Active Substance: METFORMIN HYDROCHLORIDE
  10. PRILOSEC [Concomitant]
     Active Substance: OMEPRAZOLE MAGNESIUM
  11. AMITRIPTYLINE [Concomitant]
     Active Substance: AMITRIPTYLINE
     Dosage: AT BEDTIME
  12. ROCURONIUM [Concomitant]
     Active Substance: ROCURONIUM BROMIDE
     Dosage: SEVERAL DOSES
     Dates: start: 20220408
  13. ROCURONIUM [Concomitant]
     Active Substance: ROCURONIUM BROMIDE
     Dosage: 25 MILLIGRAM
     Dates: start: 20221025

REACTIONS (10)
  - Hysterotomy [Recovered/Resolved]
  - Pulse absent [Recovered/Resolved]
  - Pulse absent [Recovered/Resolved]
  - Bradycardia [Recovered/Resolved]
  - Bradycardia [Recovered/Resolved]
  - Hernia repair [Recovered/Resolved]
  - Drug hypersensitivity [Unknown]
  - Blood pressure decreased [Recovered/Resolved]
  - Hypotension [Recovered/Resolved]
  - Hypotension [Recovered/Resolved]

NARRATIVE: CASE EVENT DATE: 20220408
